FAERS Safety Report 6422226-8 (Version None)
Quarter: 2009Q4

REPORT INFORMATION
  Report Type: 
  Country: None (occurrence: None)
  Receive Date: 20091030
  Receipt Date: 20091029
  Transmission Date: 20100525
  Serious: Yes (Death)
  Sender: FDA-Public Use
  Company Number: PHHY2009CA47149

PATIENT
  Sex: Male

DRUGS (2)
  1. SANDOSTATIN LAR [Suspect]
     Indication: PANCREATIC NEUROENDOCRINE TUMOUR
     Dosage: 50MG EVERY 4 WEEKS
     Route: 030
     Dates: start: 20070201, end: 20091008
  2. SANDOSTATIN LAR [Suspect]
     Indication: METASTASES TO LIVER

REACTIONS (1)
  - DEATH [None]
